FAERS Safety Report 25954644 (Version 1)
Quarter: 2025Q4

REPORT INFORMATION
  Report Type: Spontaneous
  Country: US (occurrence: US)
  Receive Date: 20251024
  Receipt Date: 20251024
  Transmission Date: 20260117
  Serious: Yes (Other)
  Sender: AXSOME THERAPEUTICS
  Company Number: US-AXS-AXS202510-001788

PATIENT
  Sex: Female

DRUGS (2)
  1. AUVELITY [Suspect]
     Active Substance: BUPROPION HYDROCHLORIDE\DEXTROMETHORPHAN HYDROBROMIDE
     Indication: Major depression
     Route: 050
  2. CYMBALTA [Concomitant]
     Active Substance: DULOXETINE HYDROCHLORIDE
     Indication: Product used for unknown indication
     Route: 050

REACTIONS (2)
  - Suicidal ideation [Recovered/Resolved]
  - Aggression [Recovered/Resolved]
